FAERS Safety Report 4804174-X (Version None)
Quarter: 2005Q4

REPORT INFORMATION
  Report Type: 
  Country: None (occurrence: None)
  Receive Date: 20051018
  Receipt Date: 20051018
  Transmission Date: 20060501
  Serious: Yes (Death, Hospitalization)
  Sender: FDA-Public Use
  Company Number: None

PATIENT
  Age: 70 Year
  Sex: Male
  Weight: 79.1073 kg

DRUGS (5)
  1. CYTOXAN [Suspect]
     Indication: LYMPHOMA
     Dates: start: 20050930
  2. DOXORUBICIN HCL [Suspect]
     Indication: LYMPHOMA
     Dates: start: 20050930
  3. VINCRISTINE [Suspect]
     Indication: LYMPHOMA
     Dates: start: 20050930
  4. PREDNISONE [Suspect]
     Indication: LYMPHOMA
     Dates: start: 20050930
  5. GM-CSF SQ DAYS 3-10 [Suspect]
     Route: 058
     Dates: start: 20051007

REACTIONS (7)
  - CEREBROVASCULAR ACCIDENT [None]
  - COMA [None]
  - DYSARTHRIA [None]
  - HAEMORRHAGE INTRACRANIAL [None]
  - HYPOTONIA [None]
  - NO THERAPEUTIC RESPONSE [None]
  - SUBARACHNOID HAEMORRHAGE [None]
